FAERS Safety Report 21442499 (Version 1)
Quarter: 2022Q4

REPORT INFORMATION
  Report Type: Spontaneous
  Country: US (occurrence: None)
  Receive Date: 20221010
  Receipt Date: 20221010
  Transmission Date: 20230113
  Serious: No
  Sender: FDA-Public Use
  Company Number: None

PATIENT
  Age: 53 Year
  Weight: 63.5 kg

DRUGS (2)
  1. ENBREL [Suspect]
     Active Substance: ETANERCEPT
     Indication: Psoriasis
     Dosage: 50MG ONCE WEELY SUBCUTANEOUSLY
     Route: 058
     Dates: start: 20220728
  2. ENBREL [Suspect]
     Active Substance: ETANERCEPT
     Indication: Psoriatic arthropathy

REACTIONS (4)
  - Psoriasis [None]
  - Erythema [None]
  - Skin exfoliation [None]
  - Drug ineffective [None]

NARRATIVE: CASE EVENT DATE: 20221010
